FAERS Safety Report 20971426 (Version 3)
Quarter: 2022Q3

REPORT INFORMATION
  Report Type: Spontaneous
  Country: US (occurrence: US)
  Receive Date: 20220616
  Receipt Date: 20220713
  Transmission Date: 20221026
  Serious: No
  Sender: FDA-Public Use
  Company Number: US-SANOFI-01133032

PATIENT
  Age: 12 Year
  Sex: Male
  Weight: 41.7 kg

DRUGS (1)
  1. DUPIXENT [Suspect]
     Active Substance: DUPILUMAB
     Indication: Eczema
     Dosage: 600 MG, 1X
     Route: 065
     Dates: start: 20220405, end: 20220405

REACTIONS (6)
  - Injection site pain [Recovered/Resolved]
  - Needle issue [Unknown]
  - Crying [Unknown]
  - Feeling abnormal [Unknown]
  - Gait disturbance [Unknown]
  - Product use issue [Unknown]

NARRATIVE: CASE EVENT DATE: 20220405
